FAERS Safety Report 7915746-8 (Version None)
Quarter: 2011Q4

REPORT INFORMATION
  Report Type: 
  Country: None (occurrence: None)
  Receive Date: 20111115
  Receipt Date: 20111031
  Transmission Date: 20120403
  Serious: Yes (Death, Hospitalization)
  Sender: FDA-Public Use
  Company Number: PA-WATSON-2011-16259

PATIENT
  Age: 65 Year
  Sex: Male

DRUGS (5)
  1. PREDNISONE [Suspect]
     Dosage: 1/2 TABLET DAILY X 10 DAYS
     Route: 048
  2. METHYLPREDNISOLONE [Suspect]
     Indication: PRURITUS GENERALISED
     Dosage: 40 MG, SINGLE
     Route: 042
  3. PREDNISONE [Suspect]
     Dosage: 5 MG, 1 TABLET X 10 DAYS
     Route: 048
  4. METHYLPREDNISOLONE [Suspect]
     Indication: ERYTHEMA
  5. PREDNISONE [Suspect]
     Indication: ARTHRALGIA
     Dosage: 1/4 TABLET DAILY FOR 10 DAYS
     Route: 048

REACTIONS (3)
  - PRURITUS GENERALISED [None]
  - GENERALISED ERYTHEMA [None]
  - TOXIC EPIDERMAL NECROLYSIS [None]
